FAERS Safety Report 19482694 (Version 1)
Quarter: 2021Q3

REPORT INFORMATION
  Report Type: Spontaneous
  Country: SE (occurrence: SE)
  Receive Date: 20210701
  Receipt Date: 20210701
  Transmission Date: 20211014
  Serious: Yes (Disabling)
  Sender: FDA-Public Use
  Company Number: SE-NOVOPROD-822930

PATIENT
  Age: 63 Year
  Sex: Female
  Weight: 85 kg

DRUGS (2)
  1. OZEMPIC [Suspect]
     Active Substance: SEMAGLUTIDE
     Indication: TYPE 2 DIABETES MELLITUS
     Dosage: 0.5 MG
     Route: 058
     Dates: start: 20200928, end: 20210111
  2. LEVAXIN [Concomitant]
     Active Substance: LEVOTHYROXINE SODIUM
     Dosage: UNK
     Route: 065

REACTIONS (6)
  - Nausea [Recovered/Resolved]
  - Diarrhoea [Recovering/Resolving]
  - Palpitations [Recovered/Resolved]
  - Urinary tract pain [Recovered/Resolved]
  - Abdominal pain [Recovering/Resolving]
  - Malaise [Recovering/Resolving]

NARRATIVE: CASE EVENT DATE: 20200930
